FAERS Safety Report 5300499-2 (Version None)
Quarter: 2007Q2

REPORT INFORMATION
  Report Type: 
  Country: None (occurrence: None)
  Receive Date: 20070418
  Receipt Date: 20070405
  Transmission Date: 20071010
  Serious: Yes (Other)
  Sender: FDA-Public Use
  Company Number: PHEH2007US04414

PATIENT
  Age: 44 Year
  Sex: Female
  Weight: 90.702 kg

DRUGS (6)
  1. ZELNORM [Suspect]
     Indication: IRRITABLE BOWEL SYNDROME
     Dosage: 2 MG, BID
     Dates: start: 20070101, end: 20070402
  2. DULCOLAX [Concomitant]
     Dosage: 100 MG, UNK
  3. TRAMADOL HCL [Concomitant]
  4. ZANTAC [Concomitant]
  5. ALLEGRA [Concomitant]
  6. SUCRALFATE [Concomitant]
     Indication: ULCER

REACTIONS (8)
  - BLOOD PRESSURE DECREASED [None]
  - CHEST DISCOMFORT [None]
  - DEHYDRATION [None]
  - DIARRHOEA [None]
  - DIZZINESS [None]
  - HEART RATE DECREASED [None]
  - PALPITATIONS [None]
  - SYNCOPE [None]
